FAERS Safety Report 7372590-0 (Version None)
Quarter: 2011Q1

REPORT INFORMATION
  Report Type: 
  Country: None (occurrence: None)
  Receive Date: 20110324
  Receipt Date: 20110321
  Transmission Date: 20110831
  Serious: Yes (Hospitalization)
  Sender: FDA-Public Use
  Company Number: FR-MERCK-1010FRA00076

PATIENT
  Age: 58 Year
  Sex: Female

DRUGS (14)
  1. CIPROFLOXACIN HYDROCHLORIDE [Suspect]
     Route: 065
     Dates: start: 20100729, end: 20100808
  2. ATORVASTATIN CALCIUM [Concomitant]
     Route: 065
  3. CANCIDAS [Suspect]
     Indication: FEBRILE BONE MARROW APLASIA
     Route: 042
     Dates: start: 20100724, end: 20100803
  4. SULFAMETHOXAZOLE AND TRIMETHOPRIM [Suspect]
     Route: 065
     Dates: start: 20100731, end: 20100812
  5. ASPIRIN LYSINE [Concomitant]
     Route: 065
  6. METRONIDAZOLE [Suspect]
     Route: 065
     Dates: start: 20100719, end: 20100803
  7. VANCOMYCIN HYDROCHLORIDE [Suspect]
     Route: 042
     Dates: start: 20100723, end: 20100808
  8. ACYCLOVIR [Suspect]
     Route: 065
     Dates: start: 20100719, end: 20100816
  9. ALPRAZOLAM [Concomitant]
     Route: 065
  10. PIPERACILLIN SODIUM AND TAZOBACTAM SODIUM [Suspect]
     Route: 042
     Dates: start: 20100729, end: 20100807
  11. CILASTATIN SODIUM AND IMIPENEM [Suspect]
     Indication: FEBRILE BONE MARROW APLASIA
     Route: 042
     Dates: start: 20100810, end: 20100813
  12. ESOMEPRAZOLE MAGNESIUM [Concomitant]
     Route: 065
  13. CEFOTAXIME SODIUM [Suspect]
     Route: 042
     Dates: start: 20100723, end: 20100728
  14. FLUOXETINE HYDROCHLORIDE [Concomitant]
     Route: 065

REACTIONS (1)
  - DRUG RASH WITH EOSINOPHILIA AND SYSTEMIC SYMPTOMS [None]
